FAERS Safety Report 23649319 (Version 11)
Quarter: 2025Q2

REPORT INFORMATION
  Report Type: Spontaneous
  Country: US (occurrence: US)
  Receive Date: 20240319
  Receipt Date: 20250507
  Transmission Date: 20250717
  Serious: No
  Sender: KARYOPHARM THERAPEUTICS
  Company Number: US-KARYOPHARM-2024KPT000762

PATIENT

DRUGS (10)
  1. XPOVIO [Suspect]
     Active Substance: SELINEXOR
     Indication: Plasma cell myeloma
     Route: 048
  2. XPOVIO [Suspect]
     Active Substance: SELINEXOR
  3. DEXAMETHASONE [Concomitant]
     Active Substance: DEXAMETHASONE
  4. BORTEZOMIB [Concomitant]
     Active Substance: BORTEZOMIB
  5. LISINOPRIL [Concomitant]
     Active Substance: LISINOPRIL
  6. OLANZAPINE [Concomitant]
     Active Substance: OLANZAPINE
  7. ROSUVASTATIN [Concomitant]
     Active Substance: ROSUVASTATIN
  8. TADALAFIL [Concomitant]
     Active Substance: TADALAFIL
  9. VELCADE [Concomitant]
     Active Substance: BORTEZOMIB
  10. ZYPREXA [Concomitant]
     Active Substance: OLANZAPINE

REACTIONS (10)
  - Nasopharyngitis [Unknown]
  - Seasonal allergy [Recovering/Resolving]
  - Pain [Not Recovered/Not Resolved]
  - Neuropathy peripheral [Unknown]
  - Ageusia [Not Recovered/Not Resolved]
  - Dysgeusia [Unknown]
  - Asthenia [Unknown]
  - Fatigue [Not Recovered/Not Resolved]
  - Dizziness [Unknown]
  - Nausea [Unknown]

NARRATIVE: CASE EVENT DATE: 20240101
